FAERS Safety Report 5130251-2 (Version None)
Quarter: 2006Q4

REPORT INFORMATION
  Report Type: 
  Country: None (occurrence: None)
  Receive Date: 20061013
  Receipt Date: 20060926
  Transmission Date: 20070319
  Serious: Yes (Other)
  Sender: FDA-Public Use
  Company Number: US200608001264

PATIENT
  Age: 32 Year
  Sex: Female

DRUGS (10)
  1. HUMULIN R [Suspect]
     Indication: DIABETES MELLITUS INSULIN-DEPENDENT
     Dosage: SUB. PUMP
     Dates: end: 19970101
  2. HUMULIN R [Suspect]
     Indication: DIABETES MELLITUS INSULIN-DEPENDENT
     Dosage: SUB. PUMP
     Dates: start: 19820101
  3. HUMULIN N [Suspect]
     Indication: DIABETES MELLITUS INSULIN-DEPENDENT
     Dosage: SUB. PUMP
     Dates: start: 19820101
  4. HUMULIN N [Suspect]
     Indication: DIABETES MELLITUS INSULIN-DEPENDENT
     Dosage: SUB. PUMP
     Dates: start: 19880506
  5. INSULIN, ANIMAL (INSULIN, ANIMAL UNKNOWN FORMULATION) UNKNOWN [Suspect]
     Indication: DIABETES MELLITUS INSULIN-DEPENDENT
     Dates: start: 19600901, end: 19820101
  6. INSULIN, ANIMAL (INSULIN, ANIMAL UNKNOWN FORMULATION) [Suspect]
     Indication: DIABETES MELLITUS INSULIN-DEPENDENT
     Dates: start: 19600901, end: 19820101
  7. ALDOMET [Concomitant]
  8. LABETALOL HCL [Concomitant]
  9. HYDROCHLOROTHIAZIDE [Concomitant]
  10. DEXTROSE INJECTION (GLUCOSE INJECTION) [Concomitant]

REACTIONS (13)
  - CAESAREAN SECTION [None]
  - DRUG EXPOSURE DURING PREGNANCY [None]
  - DRUG EXPOSURE VIA BREAST MILK [None]
  - HYPERTENSION [None]
  - HYPOGLYCAEMIA [None]
  - LOSS OF CONSCIOUSNESS [None]
  - POST PROCEDURAL COMPLICATION [None]
  - PRE-ECLAMPSIA [None]
  - PREGNANCY [None]
  - PREMATURE LABOUR [None]
  - RETINOPATHY [None]
  - VISUAL ACUITY REDUCED [None]
  - VISUAL DISTURBANCE [None]
